FAERS Safety Report 5032342-3 (Version None)
Quarter: 2006Q2

REPORT INFORMATION
  Report Type: 
  Country: None (occurrence: None)
  Receive Date: 20060508
  Receipt Date: 20050307
  Transmission Date: 20061013
  Serious: Yes (Hospitalization)
  Sender: FDA-Public Use
  Company Number: 230878K05USA

PATIENT
  Age: 41 Year
  Sex: Female

DRUGS (5)
  1. REBIF [Suspect]
     Indication: MULTIPLE SCLEROSIS
     Dosage: 44 MCG, 3 IN 1 WEEKS, SUBCUTANEOUS
     Route: 058
     Dates: start: 20041105
  2. LEXAPRO [Concomitant]
  3. VITAMIN D [Concomitant]
  4. CALCIUM (CALICUM /00751501/) [Concomitant]
  5. MULTIVITAMIN (MULTIVITAMIN) [Concomitant]

REACTIONS (4)
  - HEMIPARESIS [None]
  - HYPOAESTHESIA [None]
  - MULTIPLE SCLEROSIS [None]
  - NASOPHARYNGITIS [None]
